FAERS Safety Report 13124382 (Version 1)
Quarter: 2017Q1

REPORT INFORMATION
  Report Type: Spontaneous
  Country: US (occurrence: US)
  Receive Date: 20170118
  Receipt Date: 20170118
  Transmission Date: 20170428
  Serious: No
  Sender: FDA-Public Use
  Company Number: US-009507513-1612USA015107

PATIENT
  Sex: Female

DRUGS (2)
  1. PLAN B [Concomitant]
     Active Substance: LEVONORGESTREL
     Dosage: UNK
  2. NUVARING [Suspect]
     Active Substance: ETHINYL ESTRADIOL\ETONOGESTREL
     Indication: CONTRACEPTION
     Dosage: 1 DF, QM
     Route: 067

REACTIONS (1)
  - Inappropriate schedule of drug administration [Unknown]
